FAERS Safety Report 15757005 (Version 1)
Quarter: 2018Q4

REPORT INFORMATION
  Report Type: Report from Study
  Country: RO (occurrence: RO)
  Receive Date: 20181224
  Receipt Date: 20181224
  Transmission Date: 20190205
  Serious: Yes (Other)
  Sender: FDA-Public Use
  Company Number: RO-GILEAD-2018-0380816

PATIENT
  Age: 67 Year
  Sex: Female

DRUGS (4)
  1. NEFRIX [Concomitant]
     Indication: HYPERTENSION
     Dosage: 0.5 DF, QD
     Route: 048
  2. TENAXUM [Concomitant]
     Active Substance: RILMENIDINE
     Indication: ANGINA PECTORIS
     Dosage: 1 DF, QD
     Route: 048
  3. NEBIVOLOL. [Concomitant]
     Active Substance: NEBIVOLOL
     Indication: HYPERTENSION
     Dosage: 1 DF, QD
     Route: 048
  4. LEDIPASVIR/SOFOSBUVIR [Suspect]
     Active Substance: LEDIPASVIR\SOFOSBUVIR
     Indication: CHRONIC HEPATITIS C
     Dosage: 1 DF, QD
     Route: 048
     Dates: start: 20181208

REACTIONS (6)
  - Sensation of foreign body [Recovered/Resolved]
  - Asthenia [Not Recovered/Not Resolved]
  - Hypertensive crisis [Recovering/Resolving]
  - Choking sensation [Recovered/Resolved]
  - Chest discomfort [Recovered/Resolved]
  - Feeling hot [Recovered/Resolved]

NARRATIVE: CASE EVENT DATE: 201812
